FAERS Safety Report 10241308 (Version 1)
Quarter: 2014Q2

REPORT INFORMATION
  Report Type: Spontaneous
  Country: US (occurrence: US)
  Receive Date: 20140617
  Receipt Date: 20140617
  Transmission Date: 20141212
  Serious: No
  Sender: FDA-Public Use
  Company Number: US-009507513-1405USA009277

PATIENT
  Sex: Male

DRUGS (1)
  1. DR. SCHOLLS EXTRA THICK CALLUS REMOVERS [Suspect]
     Indication: HYPERKERATOSIS
     Dosage: 1 DF, ONCE
     Route: 061

REACTIONS (2)
  - Skin discolouration [Unknown]
  - Drug ineffective [Unknown]
